FAERS Safety Report 15277626 (Version 1)
Quarter: 2018Q3

REPORT INFORMATION
  Report Type: Spontaneous
  Country: AU (occurrence: AU)
  Receive Date: 20180814
  Receipt Date: 20180814
  Transmission Date: 20181010
  Serious: Yes (Life-Threatening, Hospitalization, Other)
  Sender: FDA-Public Use
  Company Number: AU-SA-2018SA210172

PATIENT
  Age: 47 Year
  Sex: Female

DRUGS (5)
  1. GLYCERYL TRINITRATE [Interacting]
     Active Substance: NITROGLYCERIN
     Dosage: UNK UNK, UNK
     Route: 065
  2. COLCHICINE. [Concomitant]
     Active Substance: COLCHICINE
  3. ASPIRIN (E.C.) [Concomitant]
     Active Substance: ASPIRIN
  4. IRBESARTAN TABS [Suspect]
     Active Substance: IRBESARTAN
     Dosage: UNK UNK, UNK
     Route: 065
  5. METFORMIN [Concomitant]
     Active Substance: METFORMIN HYDROCHLORIDE

REACTIONS (7)
  - Acute myocardial infarction [Recovered/Resolved]
  - Blood glucose abnormal [Recovered/Resolved]
  - Acidosis [Recovered/Resolved]
  - Dehydration [Recovered/Resolved]
  - Blood ketone body present [Recovered/Resolved]
  - Vomiting [Recovered/Resolved]
  - Diabetic ketoacidosis [Recovered/Resolved]
